FAERS Safety Report 26069693 (Version 1)
Quarter: 2025Q4

REPORT INFORMATION
  Report Type: Spontaneous
  Country: KR (occurrence: KR)
  Receive Date: 20251120
  Receipt Date: 20251120
  Transmission Date: 20260118
  Serious: Yes (Other)
  Sender: SANDOZ
  Company Number: KR-002147023-NVSC2025KR175972

PATIENT
  Age: 79 Year
  Sex: Male

DRUGS (9)
  1. EXELON [Suspect]
     Active Substance: RIVASTIGMINE TARTRATE
     Dosage: 10 MG
     Route: 062
     Dates: start: 201910, end: 202003
  2. EXELON [Suspect]
     Active Substance: RIVASTIGMINE TARTRATE
     Dosage: 10 MG
     Route: 062
  3. EXELON [Suspect]
     Active Substance: RIVASTIGMINE TARTRATE
     Dosage: 15 MG
     Route: 062
  4. EXELON [Suspect]
     Active Substance: RIVASTIGMINE TARTRATE
     Indication: Dementia with Lewy bodies
     Dosage: 5 MG
     Route: 062
  5. CLOZARIL [Concomitant]
     Active Substance: CLOZAPINE
     Indication: Product used for unknown indication
     Dosage: 5 MG (0.5T), QD (HS)
     Route: 065
  6. DONEPEZIL [Concomitant]
     Active Substance: DONEPEZIL
     Indication: Product used for unknown indication
     Dosage: 5 MG
     Route: 065
  7. MOSAPRIDE CITRATE [Concomitant]
     Active Substance: MOSAPRIDE CITRATE
     Indication: Product used for unknown indication
     Dosage: UNK, BID (1T)
     Route: 065
  8. MELATONIN [Concomitant]
     Active Substance: MELATONIN
     Indication: Product used for unknown indication
     Dosage: 2 MG, QD (HS) (PRN)
     Route: 065
  9. Trilevo [Concomitant]
     Indication: Product used for unknown indication
     Dosage: UNK, BID (1T, 50/12.5/ 200MG)
     Route: 065

REACTIONS (6)
  - Hallucination, visual [Unknown]
  - Anger [Unknown]
  - Hypersomnia [Unknown]
  - Memory impairment [Unknown]
  - Decreased appetite [Unknown]
  - Anxiety [Unknown]

NARRATIVE: CASE EVENT DATE: 20191001
